FAERS Safety Report 7293226-3 (Version None)
Quarter: 2011Q1

REPORT INFORMATION
  Report Type: 
  Country: None (occurrence: None)
  Receive Date: 20110215
  Receipt Date: 20110207
  Transmission Date: 20110831
  Serious: Yes (Hospitalization)
  Sender: FDA-Public Use
  Company Number: JP-ALEXION PHARMACEUTICALS INC.-A201100127

PATIENT
  Age: 28 Year
  Sex: Male

DRUGS (10)
  1. PREDNISOLONE [Concomitant]
     Indication: PAROXYSMAL NOCTURNAL HAEMOGLOBINURIA
     Dosage: 20 MG, QD
     Dates: start: 20100525, end: 20101111
  2. SOLIRIS [Suspect]
     Indication: PAROXYSMAL NOCTURNAL HAEMOGLOBINURIA
     Dosage: 600 MG, QW
     Route: 042
     Dates: start: 20101105, end: 20101101
  3. PARIET [Concomitant]
     Dosage: 10 MG, QD
     Dates: start: 20060511
  4. SOLIRIS [Suspect]
     Dosage: 900 MG, Q2W
     Route: 042
     Dates: start: 20101202
  5. RED BLOOD CELLS [Concomitant]
     Dosage: UNK
     Dates: start: 20101106, end: 20101106
  6. BAKTAR [Concomitant]
     Dosage: UNK
     Dates: start: 20061121
  7. SELBEX [Concomitant]
     Dosage: 100 MG, QD
     Dates: start: 20060511
  8. PREDNISOLONE [Concomitant]
     Dosage: 15 MG, QD
     Dates: start: 20101112
  9. PLATELETS [Concomitant]
     Dosage: UNK
     Dates: start: 20101106, end: 20101106
  10. ASPIRIN [Concomitant]
     Dosage: 100 MG, QD
     Dates: start: 20040913

REACTIONS (1)
  - GINGIVITIS [None]
